FAERS Safety Report 10172819 (Version 2)
Quarter: 2014Q3

REPORT INFORMATION
  Report Type: Spontaneous
  Country: US (occurrence: US)
  Receive Date: 20140515
  Receipt Date: 20140815
  Transmission Date: 20150326
  Serious: Yes (Other)
  Sender: FDA-Public Use
  Company Number: US-GLAXOSMITHKLINE-A1072448A

PATIENT
  Age: 75 Year
  Sex: Female

DRUGS (7)
  1. CIPRO [Concomitant]
     Active Substance: CIPROFLOXACIN HYDROCHLORIDE
  2. PROVENTIL [Concomitant]
     Active Substance: ALBUTEROL
  3. ADVAIR HFA [Suspect]
     Active Substance: FLUTICASONE PROPIONATE\SALMETEROL XINAFOATE
     Indication: ASTHMA
     Dosage: 1PUFF PER DAY
     Route: 055
     Dates: start: 2001
  4. LISINOPRIL. [Concomitant]
     Active Substance: LISINOPRIL
  5. CRESTOR [Suspect]
     Active Substance: ROSUVASTATIN CALCIUM
     Indication: BLOOD CHOLESTEROL INCREASED
     Route: 065
     Dates: start: 201309
  6. ZOLPIDEM [Concomitant]
     Active Substance: ZOLPIDEM\ZOLPIDEM TARTRATE
  7. CEFADROXIL. [Concomitant]
     Active Substance: CEFADROXIL

REACTIONS (16)
  - Sneezing [Recovering/Resolving]
  - Dyspnoea [Recovered/Resolved]
  - Loss of consciousness [Recovered/Resolved]
  - Influenza [Recovered/Resolved]
  - Bronchitis [Recovered/Resolved]
  - Myalgia [Recovered/Resolved]
  - Wheezing [Recovered/Resolved]
  - Cough [Recovering/Resolving]
  - Confusional state [Recovered/Resolved]
  - Paraesthesia [Recovered/Resolved]
  - Pulmonary congestion [Recovering/Resolving]
  - Bronchopneumonia [Recovered/Resolved]
  - Asthenia [Recovering/Resolving]
  - Gait disturbance [Recovered/Resolved]
  - Influenza like illness [Recovering/Resolving]
  - Dizziness [Recovered/Resolved]

NARRATIVE: CASE EVENT DATE: 201403
